FAERS Safety Report 7206392-2 (Version None)
Quarter: 2011Q1

REPORT INFORMATION
  Report Type: 
  Country: None (occurrence: None)
  Receive Date: 20110103
  Receipt Date: 20110103
  Transmission Date: 20110831
  Serious: Yes (Hospitalization)
  Sender: FDA-Public Use
  Company Number: PHHO2008TR12972

PATIENT
  Sex: Female
  Weight: 59 kg

DRUGS (4)
  1. DILATREND [Concomitant]
  2. NORVASC [Concomitant]
  3. SANDOSTATIN LAR [Concomitant]
  4. AFINITOR [Suspect]
     Indication: CARCINOID TUMOUR
     Dosage: 10 MG, QD
     Route: 048
     Dates: start: 20071121, end: 20081021

REACTIONS (1)
  - HYPERGLYCAEMIA [None]
